FAERS Safety Report 15011218 (Version 9)
Quarter: 2019Q1

REPORT INFORMATION
  Report Type: Spontaneous
  Country: NL (occurrence: NL)
  Receive Date: 20180614
  Receipt Date: 20190201
  Transmission Date: 20190417
  Serious: Yes (Other)
  Sender: FDA-Public Use
  Company Number: NL-009507513-1806NLD006212

PATIENT
  Age: 5 Month
  Sex: Male
  Weight: 6.3 kg

DRUGS (29)
  1. GRANISETRON FRESENIUS KABI [Concomitant]
     Active Substance: GRANISETRON
     Indication: PROPHYLAXIS OF NAUSEA AND VOMITING
     Dosage: 2 X PER DAY; 200 MICROGRAM
     Route: 042
     Dates: start: 20170216, end: 20170519
  2. PIPERACILLIN AND TAZOBACTAM [Concomitant]
     Active Substance: PIPERACILLIN SODIUM\TAZOBACTAM SODIUM
     Dosage: UNK
  3. LEVETIRACETAM. [Concomitant]
     Active Substance: LEVETIRACETAM
     Dosage: 2 X PER DAY 60 MG
     Route: 042
     Dates: start: 20170222, end: 20170410
  4. PANTOPRAZOLE [Concomitant]
     Active Substance: PANTOPRAZOLE
     Dosage: 1 X PER DAY 10 MG
     Route: 042
     Dates: start: 20170226, end: 20170522
  5. KETANEST-S [Concomitant]
     Dosage: STRENGTH: 5 MG/ML^; AMPULE 5 ML; 250 MICROGRAM PER KG PER H
     Route: 042
     Dates: start: 20170310, end: 20170314
  6. CYCLOSPORINE. [Concomitant]
     Active Substance: CYCLOSPORINE
     Indication: BONE MARROW CONDITIONING REGIMEN
     Dosage: UNK
  7. DAVITAMON D [Concomitant]
     Dosage: FORMULATION: DROPS, STRENGTH: 960 IU/ML
  8. ACETAMINOPHEN. [Concomitant]
     Active Substance: ACETAMINOPHEN
     Dosage: 6 X PER DAY 50 MG
     Route: 042
     Dates: start: 20170216, end: 20170404
  9. SODIUM CHLORIDE. [Concomitant]
     Active Substance: SODIUM CHLORIDE
     Route: 045
  10. MICAFUNGIN. [Concomitant]
     Active Substance: MICAFUNGIN SODIUM
     Indication: PRODUCT USED FOR UNKNOWN INDICATION
     Dosage: 1 X PER DAY 12 MG
     Dates: start: 20170310, end: 20170403
  11. IVEMEND [Suspect]
     Active Substance: FOSAPREPITANT DIMEGLUMINE
     Indication: PROPHYLAXIS OF NAUSEA AND VOMITING
     Dosage: LOADING DOSE: 3 MG/KG, ONCE
     Dates: start: 20170228, end: 20170301
  12. EMEND [Suspect]
     Active Substance: APREPITANT
     Indication: PROPHYLAXIS OF NAUSEA AND VOMITING
     Dosage: 2 MG/KG, ONCE DAILY
     Route: 048
  13. NUMETA G19E [Concomitant]
     Active Substance: AMINO ACIDS\DEXTROSE\ELECTROLYTES NOS\SOYBEAN OIL
  14. DIPIDOLOR [Concomitant]
     Active Substance: PIRITRAMIDE
     Dosage: 20 MICROGRAM/KG/H
     Route: 042
     Dates: start: 20170216, end: 20170319
  15. PREDNISOLONE SODIUM SUCCINATE [Concomitant]
     Active Substance: PREDNISOLONE SODIUM SUCCINATE
     Indication: PROPHYLAXIS AGAINST GRAFT VERSUS HOST DISEASE
     Dosage: 2 X PER DAY 3 MG
     Route: 042
     Dates: start: 20170307, end: 20170405
  16. KETANEST-S [Concomitant]
     Dosage: STRENGTH: 5 MG/ML^; AMPULE 5 ML; 300 MICROGRAM PER KG PER H
     Route: 042
     Dates: start: 20170314, end: 20170321
  17. SANDIMMUN [Concomitant]
     Active Substance: CYCLOSPORINE
     Indication: PROPHYLAXIS AGAINST GRAFT VERSUS HOST DISEASE
     Dosage: 2 X  PER DAY 18 MG
     Route: 042
     Dates: start: 20170310, end: 20170328
  18. VORICONAZOLE. [Suspect]
     Active Substance: VORICONAZOLE
     Indication: PRODUCT USED FOR UNKNOWN INDICATION
     Dosage: UNK
  19. AMLODIPINE [Concomitant]
     Active Substance: AMLODIPINE BESYLATE
     Dosage: 2 X PER DAY 1.5 MG; STRENGTH: 50 MG/ML
     Route: 048
     Dates: start: 20170301, end: 20170406
  20. TARGOCID [Concomitant]
     Active Substance: TEICOPLANIN
     Dosage: 1 X PER DAY 60 MG
     Route: 042
     Dates: start: 20170228, end: 20170324
  21. ANTILYMPHOCYTE IMMUNOGLOBULIN [Concomitant]
     Active Substance: THYMOCYTE IMMUNE GLOBULIN NOS
     Indication: BONE MARROW CONDITIONING REGIMEN
     Dosage: UNK
  22. FLUDARABINE PHOSPHATE. [Concomitant]
     Active Substance: FLUDARABINE PHOSPHATE
     Indication: BONE MARROW CONDITIONING REGIMEN
     Dosage: UNK
  23. IVEMEND [Suspect]
     Active Substance: FOSAPREPITANT DIMEGLUMINE
     Dosage: DAILY DOSE: 2 MG/KG ONCE DAILY
     Dates: start: 20170301, end: 20170314
  24. CATAPRESAN [Concomitant]
     Active Substance: CLONIDINE
     Dosage: STRENGTH: 0.15 MG/ML AMPOULE 1ML; 0.2 MICROGRAM/KG/HOUR
     Route: 042
     Dates: start: 20170216, end: 20170413
  25. HYDROCORTISONE ACETATE. [Concomitant]
     Active Substance: HYDROCORTISONE ACETATE
     Route: 003
  26. THIOTEPA. [Concomitant]
     Active Substance: THIOTEPA
     Indication: BONE MARROW CONDITIONING REGIMEN
     Dosage: UNK
  27. FUROSEMIDE SANDOZ [Concomitant]
     Active Substance: FUROSEMIDE
     Dosage: 2 X PER DAY 3 MG
     Route: 042
     Dates: start: 20170307, end: 20170419
  28. TEMESTA [LORAZEPAM] [Concomitant]
     Active Substance: LORAZEPAM
     Indication: PROPHYLAXIS OF NAUSEA AND VOMITING
     Dosage: 4 MILLIGRAM PER MILLILITRE; AMPULE 1 ML; AS NECESSARY 4 X PER DAY 0.5 MG
     Route: 042
     Dates: start: 20170311, end: 20170311
  29. TREOSULFAN [Concomitant]
     Active Substance: TREOSULFAN
     Indication: BONE MARROW CONDITIONING REGIMEN
     Dosage: UNK

REACTIONS (2)
  - Hepatic failure [Recovered/Resolved]
  - Off label use [Unknown]

NARRATIVE: CASE EVENT DATE: 20170309
